FAERS Safety Report 10446365 (Version 3)
Quarter: 2014Q4

REPORT INFORMATION
  Report Type: Report from Study
  Country: GB (occurrence: GB)
  Receive Date: 20140911
  Receipt Date: 20141215
  Transmission Date: 20150528
  Serious: Yes (Hospitalization)
  Sender: FDA-Public Use
  Company Number: GB-BIOGENIDEC-2014BI088057

PATIENT
  Age: 10 Year
  Sex: Male
  Weight: 43 kg

DRUGS (9)
  1. RFIXFC [Suspect]
     Active Substance: EFTRENONACOG ALFA
     Indication: FACTOR IX DEFICIENCY
     Route: 042
     Dates: start: 20121120
  2. DOUBLEBASE [Concomitant]
     Active Substance: ISOPROPYL MYRISTATE\PARAFFIN
     Indication: ECZEMA
     Dosage: DOSE UNIT:1
     Route: 061
     Dates: start: 2007
  3. RFIXFC [Suspect]
     Active Substance: EFTRENONACOG ALFA
     Indication: FACTOR IX DEFICIENCY
     Dates: start: 20140901
  4. BETNOVATE [Concomitant]
     Active Substance: BETAMETHASONE
     Indication: ECZEMA
     Route: 061
     Dates: start: 201310
  5. OILATUM BATH ADDITIVE [Concomitant]
     Indication: ECZEMA
     Dosage: DOSE UNIT:1
     Route: 061
     Dates: start: 2007
  6. CETIRIZINE HYDROCHLORIDE. [Concomitant]
     Active Substance: CETIRIZINE HYDROCHLORIDE
     Indication: SEASONAL ALLERGY
     Route: 048
     Dates: start: 20130501
  7. OILATUM EMOLLIENT [Concomitant]
     Indication: ECZEMA
     Dosage: DOSE UNIT:1
     Route: 061
     Dates: start: 2007
  8. RFIXFC [Suspect]
     Active Substance: EFTRENONACOG ALFA
     Indication: FACTOR IX DEFICIENCY
     Route: 042
     Dates: start: 20140827
  9. EMLA [Concomitant]
     Active Substance: LIDOCAINE\PRILOCAINE
     Indication: ANAESTHETIC PREMEDICATION
     Dosage: DOSE UNIT:1
     Route: 061
     Dates: start: 20100525

REACTIONS (2)
  - Fall [Recovered/Resolved]
  - Upper limb fracture [Recovered/Resolved]

NARRATIVE: CASE EVENT DATE: 20140827
